FAERS Safety Report 7866750-X (Version None)
Quarter: 2011Q4

REPORT INFORMATION
  Report Type: 
  Country: None (occurrence: None)
  Receive Date: 20111028
  Receipt Date: 20110811
  Transmission Date: 20120403
  Serious: Yes (Other)
  Sender: FDA-Public Use
  Company Number: US-GLAXOSMITHKLINE-A0940518A

PATIENT
  Age: 76 Year
  Sex: Female

DRUGS (7)
  1. COMBIVENT [Concomitant]
  2. PREMPRO [Concomitant]
  3. ADVAIR DISKUS 100/50 [Suspect]
     Indication: PRODUCT USED FOR UNKNOWN INDICATION
     Dosage: 1PUFF TWICE PER DAY
     Route: 055
     Dates: start: 20091101
  4. GABAPENTIN [Concomitant]
  5. SUMATRIPTAN SUCCINATE [Concomitant]
  6. MORPHINE [Concomitant]
  7. ZOLPIDEM TARTRATE [Concomitant]

REACTIONS (2)
  - INHALATION THERAPY [None]
  - PRODUCT QUALITY ISSUE [None]
